FAERS Safety Report 16817967 (Version 1)
Quarter: 2019Q3

REPORT INFORMATION
  Report Type: Spontaneous
  Country: GB (occurrence: GB)
  Receive Date: 20190917
  Receipt Date: 20190917
  Transmission Date: 20191005
  Serious: Yes (Hospitalization)
  Sender: FDA-Public Use
  Company Number: GB-MYLANLABS-2019M1086730

PATIENT
  Age: 70 Year
  Sex: Female
  Weight: 57.8 kg

DRUGS (11)
  1. EPIRUBICIN [Suspect]
     Active Substance: EPIRUBICIN
     Indication: CHEMOTHERAPY
     Dosage: UNK
  2. CYCLOPHOSPHAMIDE MONOHYDRATE [Suspect]
     Active Substance: CYCLOPHOSPHAMIDE
     Indication: ADJUVANT THERAPY
     Dosage: UNK UNK, Q3W, EC CHEMOTHERAPY
     Route: 065
     Dates: start: 20190205
  3. GABAPENTIN. [Concomitant]
     Active Substance: GABAPENTIN
     Indication: OSTEOARTHRITIS
     Dosage: UNK
     Route: 065
  4. DIHYDROCODEINE [Concomitant]
     Active Substance: DIHYDROCODEINE
     Indication: PRODUCT USED FOR UNKNOWN INDICATION
     Dosage: UNK
     Route: 065
  5. AMITRIPTYLINE [Concomitant]
     Active Substance: AMITRIPTYLINE
     Indication: MIGRAINE
     Dosage: UNK
     Route: 065
     Dates: start: 201804
  6. CYCLOPHOSPHAMIDE MONOHYDRATE [Suspect]
     Active Substance: CYCLOPHOSPHAMIDE
     Indication: CHEMOTHERAPY
     Dosage: UNK
  7. MEROPENEM. [Concomitant]
     Active Substance: MEROPENEM
     Indication: PRODUCT USED FOR UNKNOWN INDICATION
     Route: 042
     Dates: start: 20180515
  8. EPIRUBICIN [Suspect]
     Active Substance: EPIRUBICIN
     Indication: ADJUVANT THERAPY
     Dosage: EC CHEMOTHERAPY
     Route: 065
     Dates: start: 20190205
  9. BENDROFLUMETHIAZIDE [Concomitant]
     Active Substance: BENDROFLUMETHIAZIDE
     Indication: HYPERTENSION
     Route: 065
  10. PARACETAMOL [Concomitant]
     Active Substance: ACETAMINOPHEN
     Indication: PAIN
     Dosage: UNK
     Route: 065
     Dates: start: 20180808
  11. ATENOLOL. [Concomitant]
     Active Substance: ATENOLOL
     Indication: HYPERTENSION
     Dosage: UNK
     Route: 065
     Dates: start: 2002

REACTIONS (4)
  - Alopecia [Not Recovered/Not Resolved]
  - Flank pain [Recovering/Resolving]
  - Nausea [Not Recovered/Not Resolved]
  - Dizziness [Not Recovered/Not Resolved]

NARRATIVE: CASE EVENT DATE: 20190206
